FAERS Safety Report 19660762 (Version 1)
Quarter: 2021Q3

REPORT INFORMATION
  Report Type: Spontaneous
  Country: US (occurrence: US)
  Receive Date: 20210805
  Receipt Date: 20210805
  Transmission Date: 20211014
  Serious: No
  Sender: FDA-Public Use
  Company Number: US-SA-2021SA256047

PATIENT
  Sex: Male

DRUGS (11)
  1. CETIRIZINE HCL [Concomitant]
     Active Substance: CETIRIZINE HYDROCHLORIDE
  2. FLUTICASONE PROPIONATE. [Concomitant]
     Active Substance: FLUTICASONE PROPIONATE
  3. ELIDEL [Concomitant]
     Active Substance: PIMECROLIMUS
  4. TRIAMCINOLONE ACETONIDE. [Concomitant]
     Active Substance: TRIAMCINOLONE ACETONIDE
  5. VASELINE [PARAFFIN] [Concomitant]
     Active Substance: PARAFFIN
  6. DUPIXENT [Suspect]
     Active Substance: DUPILUMAB
     Indication: DERMATITIS ATOPIC
     Dosage: 200 MG
     Route: 058
  7. MONTELUKAST SODIUM. [Concomitant]
     Active Substance: MONTELUKAST SODIUM
  8. EUCRISA [Concomitant]
     Active Substance: CRISABOROLE
  9. ALBUTEROL SULFATE. [Concomitant]
     Active Substance: ALBUTEROL SULFATE
  10. EPIPEN JR [Concomitant]
     Active Substance: EPINEPHRINE
  11. DERMA?SMOOTHE/FS [Concomitant]
     Active Substance: FLUOCINOLONE ACETONIDE

REACTIONS (1)
  - Product dose omission issue [Unknown]
